FAERS Safety Report 11432758 (Version 1)
Quarter: 2015Q3

REPORT INFORMATION
  Report Type: Spontaneous
  Country: CH (occurrence: CH)
  Receive Date: 20150828
  Receipt Date: 20150828
  Transmission Date: 20151125
  Serious: Yes (Life-Threatening, Hospitalization, Other)
  Sender: FDA-Public Use
  Company Number: CH-GILEAD-2015-0168433

PATIENT
  Age: 64 Year
  Sex: Male
  Weight: 61 kg

DRUGS (15)
  1. SOVALDI [Suspect]
     Active Substance: SOFOSBUVIR
     Indication: CHRONIC HEPATITIS C
     Dosage: 200 MG, QD
     Route: 048
     Dates: start: 20150111
  2. ESOMEPRAZOL ACTAVIS [Concomitant]
     Active Substance: ESOMEPRAZOLE
     Route: 048
  3. LYRICA [Concomitant]
     Active Substance: PREGABALIN
     Route: 048
  4. ZESTRIL [Concomitant]
     Active Substance: LISINOPRIL
     Route: 048
  5. JANUVIA [Concomitant]
     Active Substance: SITAGLIPTIN PHOSPHATE
     Route: 048
  6. CALCIUM PHOSPHATE [Concomitant]
     Active Substance: CALCIUM PHOSPHATE
  7. TOREM                              /01036501/ [Concomitant]
     Active Substance: TORSEMIDE
     Route: 048
  8. ASPIRIN CARDIO [Concomitant]
     Active Substance: ASPIRIN
     Route: 048
  9. NOVALGIN [Concomitant]
     Active Substance: METAMIZOLE SODIUM
     Route: 048
  10. VITAMIN D3 STREULI [Concomitant]
     Route: 048
  11. PREDNISON [Concomitant]
     Active Substance: PREDNISONE
     Route: 048
  12. BELOC-ZOK COMP [Concomitant]
     Active Substance: HYDROCHLOROTHIAZIDE\METOPROLOL SUCCINATE
     Route: 048
  13. COPEGUS [Suspect]
     Active Substance: RIBAVIRIN
     Indication: CHRONIC HEPATITIS C
     Dosage: 200 MG, QD
     Route: 048
     Dates: start: 20150111
  14. TACROLIMUS. [Suspect]
     Active Substance: TACROLIMUS
     Indication: PROPHYLAXIS AGAINST GRAFT VERSUS HOST DISEASE
     Dosage: 0.1 MG, QID
     Route: 048
     Dates: start: 20150403
  15. METOLAZON [Concomitant]
     Active Substance: METOLAZONE
     Route: 048

REACTIONS (3)
  - Pericarditis [Recovered/Resolved]
  - Cardiac tamponade [Recovered/Resolved]
  - Pericardial haemorrhage [Recovered/Resolved]

NARRATIVE: CASE EVENT DATE: 20150523
